FAERS Safety Report 10026662 (Version 1)
Quarter: 2014Q1

REPORT INFORMATION
  Report Type: Report from Study
  Country: CN (occurrence: CN)
  Receive Date: 20140321
  Receipt Date: 20140321
  Transmission Date: 20141002
  Serious: Yes (Other)
  Sender: FDA-Public Use
  Company Number: CN-ROCHE-1364031

PATIENT
  Age: 60 Year
  Sex: Female

DRUGS (7)
  1. PEGASYS [Suspect]
     Indication: HEPATITIS B
     Route: 058
     Dates: start: 20130426, end: 201305
  2. PEGASYS [Suspect]
     Indication: HEPATIC CIRRHOSIS
     Route: 058
     Dates: start: 201305
  3. PEGASYS [Suspect]
     Route: 058
  4. PEGASYS [Suspect]
     Route: 058
  5. RIBAVIRIN [Suspect]
     Indication: HEPATITIS B
     Dosage: 1G PER DAY
     Route: 048
     Dates: start: 20130426, end: 201309
  6. RIBAVIRIN [Suspect]
     Indication: HEPATIC CIRRHOSIS
     Dosage: 800MG PER DAY
     Route: 048
     Dates: start: 201309
  7. RIBAVIRIN [Suspect]
     Dosage: 700MG PER DAY
     Route: 048
     Dates: start: 201309

REACTIONS (2)
  - White blood cell count decreased [Not Recovered/Not Resolved]
  - Platelet count decreased [Not Recovered/Not Resolved]
